FAERS Safety Report 8268222 (Version 2)
Quarter: 2013Q2

REPORT INFORMATION
  Report Type: Spontaneous
  Country: US (occurrence: None)
  Receive Date: 20111122
  Receipt Date: 20120426
  Transmission Date: 20140414
  Serious: Yes (Hospitalization)
  Sender: FDA-Public Use
  Company Number: PHEH2011US02362

PATIENT
  Age: 49 Year
  Sex: Female

DRUGS (1)
  1. GILENYA [Suspect]
     Indication: MULTIPLE SCLEROSIS
     Route: 048
     Dates: start: 20110523

REACTIONS (4)
  - MULTIPLE SCLEROSIS RELAPSE [None]
  - SPEECH DISORDER [None]
  - BACK PAIN [None]
  - MOBILITY DECREASED [None]
